FAERS Safety Report 8379505-7 (Version None)
Quarter: 2012Q1

REPORT INFORMATION
  Report Type: 
  Country: None (occurrence: None)
  Receive Date: 20120323
  Receipt Date: 20110308
  Transmission Date: 20120608
  Serious: Yes (Hospitalization, Other)
  Sender: FDA-Public Use
  Company Number: 163-21880-11031047

PATIENT
  Age: 72 Year
  Sex: Female

DRUGS (6)
  1. ALLOPURINOL [Concomitant]
  2. LASIX [Concomitant]
  3. POTASSIUM (POTASSIUM) (UNKNOWN) [Concomitant]
  4. LORTAB (VICODIN) (UNKNOWN) [Concomitant]
  5. REVLIMID [Suspect]
     Indication: 5Q MINUS SYNDROME
     Dosage: 5 MG, 1 IN 2 D, PO
     Route: 048
     Dates: start: 20091221, end: 20110101
  6. DURAGESIC (FENTANYL) (UNKNOWN) [Concomitant]

REACTIONS (2)
  - THROMBOCYTOPENIA [None]
  - PNEUMONIA [None]
